FAERS Safety Report 14367578 (Version 8)
Quarter: 2018Q2

REPORT INFORMATION
  Report Type: Spontaneous
  Country: CA (occurrence: CA)
  Receive Date: 20180109
  Receipt Date: 20180417
  Transmission Date: 20180711
  Serious: Yes (Hospitalization)
  Sender: FDA-Public Use
  Company Number: CA-CELLTRION INC.-2017CA005814

PATIENT

DRUGS (18)
  1. CIMZIA [Concomitant]
     Active Substance: CERTOLIZUMAB PEGOL
     Dosage: UNK
     Route: 065
  2. INFLECTRA [Suspect]
     Active Substance: INFLIXIMAB-DYYB
     Dosage: 615 MG, EVERY 4 WEEKS
     Route: 042
     Dates: start: 2017
  3. INFLECTRA [Suspect]
     Active Substance: INFLIXIMAB-DYYB
     Dosage: 840 MG, EVERY 4 WEEKS
     Route: 042
  4. DOXAZOSIN [Concomitant]
     Active Substance: DOXAZOSIN\DOXAZOSIN MESYLATE
     Dosage: 1 MG, DAILY
     Route: 048
  5. JANUMET [Concomitant]
     Active Substance: METFORMIN HYDROCHLORIDE\SITAGLIPTIN PHOSPHATE
     Dosage: UNK
     Route: 065
  6. INFLECTRA [Suspect]
     Active Substance: INFLIXIMAB-DYYB
     Dosage: 600 MG(5MG/KG)
     Route: 065
     Dates: start: 20180102, end: 20180102
  7. INFLECTRA [Suspect]
     Active Substance: INFLIXIMAB-DYYB
     Dosage: 840 MG, CYCLIC (THEN EVERY 4 WEEKS)
     Dates: start: 20180201, end: 2018
  8. CYMBALTA [Concomitant]
     Active Substance: DULOXETINE HYDROCHLORIDE
     Dosage: UNK
  9. TRAMADOL. [Concomitant]
     Active Substance: TRAMADOL
     Dosage: 325 MG, PRN
     Route: 065
  10. BISOPROLOL [Concomitant]
     Active Substance: BISOPROLOL
     Dosage: 10 MG, DAILY
     Route: 048
  11. SUMATRIPTAN. [Concomitant]
     Active Substance: SUMATRIPTAN
     Dosage: 100 MG, PRN
     Route: 065
  12. TRAMACET [Concomitant]
     Active Substance: ACETAMINOPHEN\TRAMADOL
     Dosage: UNK
  13. INFLECTRA [Suspect]
     Active Substance: INFLIXIMAB-DYYB
     Indication: RHEUMATOID ARTHRITIS
     Dosage: 369 MG CYCLIC, EVERY 0,2,6, WEEKS THEN EVERY 4 WEEKS
     Route: 042
     Dates: start: 20170109, end: 2017
  14. LANTUS [Concomitant]
     Active Substance: INSULIN GLARGINE
     Dosage: UNK
     Route: 065
  15. DULOXETINE. [Concomitant]
     Active Substance: DULOXETINE
     Dosage: 60 MG, DAILY
     Route: 048
  16. ALTACE [Concomitant]
     Active Substance: RAMIPRIL
     Dosage: 10 MG, DAILY
     Route: 048
  17. LYRICA [Concomitant]
     Active Substance: PREGABALIN
     Dosage: UNK
  18. PREDNISONE. [Concomitant]
     Active Substance: PREDNISONE
     Dosage: UNK

REACTIONS (8)
  - Blood pressure fluctuation [Recovered/Resolved]
  - Blood pressure increased [Recovering/Resolving]
  - Dyspnoea exertional [Unknown]
  - Pulmonary embolism [Recovering/Resolving]
  - Respiratory tract infection viral [Recovered/Resolved]
  - Incorrect dose administered [Recovered/Resolved]
  - Product use issue [Unknown]
  - Anxiety [Recovering/Resolving]

NARRATIVE: CASE EVENT DATE: 2017
